FAERS Safety Report 8484837-8 (Version None)
Quarter: 2012Q3

REPORT INFORMATION
  Report Type: 
  Country: None (occurrence: None)
  Receive Date: 20120703
  Receipt Date: 20120621
  Transmission Date: 20120928
  Serious: Yes (Death, Other)
  Sender: FDA-Public Use
  Company Number: JP-GENZYME-THYM-1003248

PATIENT
  Sex: Female
  Weight: 55 kg

DRUGS (6)
  1. CYCLOSPORINE [Suspect]
     Indication: APLASTIC ANAEMIA
     Dosage: 150 MG, BID
     Route: 065
     Dates: start: 20120423, end: 20120508
  2. METHYLPEDNISOLONE SODIUM SUCCINATE [Concomitant]
     Indication: PROPHYLAXIS
     Dosage: 125 MG, QD
     Route: 065
     Dates: start: 20120423, end: 20120427
  3. PREDNISOLONE ACETATE [Suspect]
     Indication: PROPHYLAXIS
     Dosage: 20 MG, QD
     Route: 065
     Dates: start: 20120504, end: 20120508
  4. THYMOGLOBULIN [Suspect]
     Indication: APLASTIC ANAEMIA
     Dosage: 150 MG, QD
     Route: 042
     Dates: start: 20120423, end: 20120427
  5. VALACYCLOVIR HYDROCHLORIDE [Concomitant]
     Indication: PROPHYLAXIS
     Dosage: 500 MG, QD
     Route: 065
     Dates: start: 20120423, end: 20120508
  6. RABEPRAZOLE SODIUM [Concomitant]
     Indication: PROPHYLAXIS
     Dosage: 10 MG, QD
     Route: 048
     Dates: start: 20120423, end: 20120508

REACTIONS (7)
  - SEPSIS [None]
  - NAUSEA [None]
  - HAEMATEMESIS [None]
  - SHOCK [None]
  - HAEMOPTYSIS [None]
  - PYREXIA [None]
  - EPIGASTRIC DISCOMFORT [None]
